FAERS Safety Report 13243387 (Version 1)
Quarter: 2017Q1

REPORT INFORMATION
  Report Type: Spontaneous
  Country: US (occurrence: US)
  Receive Date: 20170216
  Receipt Date: 20170216
  Transmission Date: 20170428
  Serious: No
  Sender: FDA-Public Use
  Company Number: US-ALLERGAN-1700812US

PATIENT
  Sex: Female

DRUGS (1)
  1. KYBELLA [Suspect]
     Active Substance: DEOXYCHOLIC ACID
     Indication: FAT TISSUE INCREASED
     Dosage: UNK, SINGLE
     Route: 065
     Dates: start: 20161031, end: 20161031

REACTIONS (7)
  - Hypoaesthesia [Recovering/Resolving]
  - Headache [Unknown]
  - Pain in jaw [Recovering/Resolving]
  - Facial pain [Recovering/Resolving]
  - Injection site mass [Not Recovered/Not Resolved]
  - Neck pain [Recovering/Resolving]
  - Injection site swelling [Recovering/Resolving]

NARRATIVE: CASE EVENT DATE: 20161031
